FAERS Safety Report 5417865-7 (Version None)
Quarter: 2007Q3

REPORT INFORMATION
  Report Type: 
  Country: None (occurrence: None)
  Receive Date: 20070815
  Receipt Date: 20070802
  Transmission Date: 20080115
  Serious: Yes (Hospitalization)
  Sender: FDA-Public Use
  Company Number: 033-27

PATIENT
  Age: 67 Year
  Sex: Female

DRUGS (5)
  1. TEVETEN HCT [Suspect]
     Indication: HYPERTENSION
     Dates: start: 20060101, end: 20070430
  2. AUGMENTIN [Suspect]
     Indication: PYREXIA
     Dosage: 625 MG DAILY PO
     Route: 048
     Dates: start: 20070430, end: 20070430
  3. ZOLPIDEM TARTRATE [Concomitant]
  4. FLAMON (VERAPAMIL HYDROCHLORIDE) [Concomitant]
  5. ACETAMINOPHEN [Concomitant]

REACTIONS (5)
  - ANAEMIA [None]
  - DEHYDRATION [None]
  - MALNUTRITION [None]
  - RENAL FAILURE [None]
  - TYPE I HYPERSENSITIVITY [None]
